FAERS Safety Report 8771617 (Version 1)
Quarter: 2012Q4

REPORT INFORMATION
  Report Type: 
  Country: US (occurrence: US)
  Receive Date: 20120906
  Receipt Date: 20120906
  Transmission Date: 20130627
  Serious: No
  Sender: FDA-Public Use
  Company Number: US-009507513-2012SP034401

PATIENT

DRUGS (1)
  1. DR. SCHOLLS ONE STEP CORN REMOVERS [Suspect]
     Indication: HYPERKERATOSIS
     Dosage: UNK UNK, Unknown
     Route: 061

REACTIONS (1)
  - Therapeutic product ineffective [Unknown]
